FAERS Safety Report 11789025 (Version 3)
Quarter: 2015Q4

REPORT INFORMATION
  Report Type: Spontaneous
  Country: US (occurrence: US)
  Receive Date: 20151201
  Receipt Date: 20151221
  Transmission Date: 20160305
  Serious: No
  Sender: FDA-Public Use
  Company Number: US-BAYER-2015-474600

PATIENT
  Age: 38 Year
  Sex: Female

DRUGS (3)
  1. MIRENA [Suspect]
     Active Substance: LEVONORGESTREL
     Indication: MENSTRUAL CYCLE MANAGEMENT
  2. MIRENA [Suspect]
     Active Substance: LEVONORGESTREL
     Indication: PREMENSTRUAL DYSPHORIC DISORDER
     Dosage: 20 MCG/24HR, CONT
     Route: 015
     Dates: start: 20151105, end: 20151105
  3. MIRENA [Suspect]
     Active Substance: LEVONORGESTREL
     Indication: CONTRACEPTION

REACTIONS (2)
  - Device difficult to use [None]
  - Post procedural discharge [Recovered/Resolved]

NARRATIVE: CASE EVENT DATE: 20151105
